FAERS Safety Report 8911938 (Version 3)
Quarter: 2012Q4

REPORT INFORMATION
  Report Type: 
  Country: US (occurrence: US)
  Receive Date: 20121116
  Receipt Date: 20121218
  Transmission Date: 20130627
  Serious: No
  Sender: FDA-Public Use
  Company Number: US-PFIZER INC-2012282744

PATIENT
  Age: 77 Year
  Sex: Female
  Weight: 77.1 kg

DRUGS (4)
  1. REVATIO [Suspect]
     Indication: PULMONARY HYPERTENSION
     Dosage: 20 mg 3x/day
     Route: 048
  2. FUROSEMIDE [Concomitant]
     Dosage: UNK
  3. NORVASC [Concomitant]
     Indication: BLOOD PRESSURE HIGH
     Dosage: UNK
  4. DIGOXIN [Concomitant]
     Indication: BLOOD PRESSURE HIGH
     Dosage: UNK

REACTIONS (1)
  - Epistaxis [Unknown]
